FAERS Safety Report 12273594 (Version 2)
Quarter: 2016Q2

REPORT INFORMATION
  Report Type: Spontaneous
  Country: HR (occurrence: HR)
  Receive Date: 20160415
  Receipt Date: 20160524
  Transmission Date: 20160815
  Serious: Yes (Life-Threatening, Hospitalization, Other)
  Sender: FDA-Public Use
  Company Number: HR-TEVA-651400ACC

PATIENT
  Age: 41 Year
  Sex: Female

DRUGS (34)
  1. ARAVA [Suspect]
     Active Substance: LEFLUNOMIDE
     Indication: RHEUMATOID ARTHRITIS
     Route: 048
     Dates: start: 201103, end: 201103
  2. HUMIRA [Suspect]
     Active Substance: ADALIMUMAB
     Route: 058
     Dates: start: 201601
  3. DECORTIN [Concomitant]
     Active Substance: PREDNISONE
     Dosage: REDUCTION TO 5 MG
     Dates: start: 200712
  4. DECORTIN [Concomitant]
     Active Substance: PREDNISONE
     Dosage: 15-10 MG
     Dates: start: 201309
  5. DECORTIN [Concomitant]
     Active Substance: PREDNISONE
     Dosage: 7.5-10 MG
     Dates: start: 201603
  6. ARAVA [Suspect]
     Active Substance: LEFLUNOMIDE
     Route: 048
     Dates: start: 201212, end: 201304
  7. ARAVA [Suspect]
     Active Substance: LEFLUNOMIDE
     Route: 048
     Dates: start: 200802
  8. HUMIRA [Suspect]
     Active Substance: ADALIMUMAB
     Indication: RHEUMATOID ARTHRITIS
     Route: 058
     Dates: start: 201001, end: 201004
  9. SULFASALAZINE DELAYED-RELEASE [Suspect]
     Active Substance: SULFASALAZINE
     Indication: RHEUMATOID ARTHRITIS
     Route: 048
     Dates: start: 201103, end: 201103
  10. INFLECTRA [Suspect]
     Active Substance: INFLIXIMAB-DYYB
     Indication: PRODUCT USED FOR UNKNOWN INDICATION
     Route: 065
     Dates: start: 201501, end: 201503
  11. VITAMIN D [Concomitant]
     Active Substance: CHOLECALCIFEROL
     Indication: PRODUCT USED FOR UNKNOWN INDICATION
     Dates: start: 200712
  12. ARAVA [Suspect]
     Active Substance: LEFLUNOMIDE
     Dosage: 10-20 MG
     Route: 048
     Dates: start: 201407
  13. DECORTIN [Concomitant]
     Active Substance: PREDNISONE
     Dates: start: 200802
  14. DECORTIN [Concomitant]
     Active Substance: PREDNISONE
     Dates: start: 201511
  15. ARAVA [Suspect]
     Active Substance: LEFLUNOMIDE
     Route: 048
     Dates: start: 201001, end: 201103
  16. ARAVA [Suspect]
     Active Substance: LEFLUNOMIDE
     Dosage: 10-20 MG
     Route: 048
     Dates: start: 201410
  17. SULFASALAZINE DELAYED-RELEASE [Suspect]
     Active Substance: SULFASALAZINE
     Dosage: 2 X 2
     Route: 048
     Dates: start: 201304
  18. DECORTIN [Concomitant]
     Active Substance: PREDNISONE
     Dosage: 10-5 MG
     Dates: start: 201407
  19. ARAVA [Suspect]
     Active Substance: LEFLUNOMIDE
     Route: 048
     Dates: start: 201001, end: 201004
  20. ARAVA [Suspect]
     Active Substance: LEFLUNOMIDE
     Route: 048
     Dates: start: 201108
  21. HUMIRA [Suspect]
     Active Substance: ADALIMUMAB
     Route: 058
     Dates: start: 201108
  22. HUMIRA [Suspect]
     Active Substance: ADALIMUMAB
     Route: 058
     Dates: start: 201212, end: 201304
  23. DECORTIN [Concomitant]
     Active Substance: PREDNISONE
     Indication: RHEUMATOID ARTHRITIS
     Dates: start: 200707
  24. DECORTIN [Concomitant]
     Active Substance: PREDNISONE
     Dosage: 10-5 MG
     Dates: start: 201304
  25. ARAVA [Suspect]
     Active Substance: LEFLUNOMIDE
     Route: 048
     Dates: start: 200907
  26. SULFASALAZINE DELAYED-RELEASE [Suspect]
     Active Substance: SULFASALAZINE
     Dosage: 2 X 2
     Route: 048
     Dates: start: 201001, end: 201004
  27. PREDNISONE. [Concomitant]
     Active Substance: PREDNISONE
     Indication: RHEUMATOID ARTHRITIS
     Route: 048
     Dates: start: 201001, end: 201004
  28. DECORTIN [Concomitant]
     Active Substance: PREDNISONE
     Dosage: 10-5 MG
     Dates: start: 201001, end: 201103
  29. DECORTIN [Concomitant]
     Active Substance: PREDNISONE
     Dosage: 10-5 MG
     Dates: start: 201403
  30. ARAVA [Suspect]
     Active Substance: LEFLUNOMIDE
     Dosage: 10-20 MG
     Route: 048
     Dates: start: 201403, end: 201103
  31. SULFASALAZINE DELAYED-RELEASE [Suspect]
     Active Substance: SULFASALAZINE
     Dosage: 2 X 2
     Route: 048
     Dates: start: 200907, end: 201004
  32. ENBREL [Suspect]
     Active Substance: ETANERCEPT
     Indication: PRODUCT USED FOR UNKNOWN INDICATION
     Route: 065
     Dates: start: 201407, end: 201410
  33. DECORTIN [Concomitant]
     Active Substance: PREDNISONE
     Dates: start: 201410
  34. CALCIUM [Concomitant]
     Active Substance: CALCIUM
     Indication: PRODUCT USED FOR UNKNOWN INDICATION
     Dates: start: 200712

REACTIONS (15)
  - Pyrexia [Recovered/Resolved]
  - Hepatotoxicity [Unknown]
  - Abdominal pain [Unknown]
  - General physical health deterioration [Unknown]
  - Mobility decreased [Unknown]
  - Hepatic enzyme increased [Unknown]
  - Infusion related reaction [Recovered/Resolved]
  - Suicide attempt [Unknown]
  - Suicide attempt [Unknown]
  - Bone erosion [Unknown]
  - Suicide attempt [Unknown]
  - Rheumatoid arthritis [Not Recovered/Not Resolved]
  - Polyarthritis [Unknown]
  - Bone erosion [Unknown]
  - Eye swelling [Unknown]

NARRATIVE: CASE EVENT DATE: 201103
